FAERS Safety Report 4823324-2 (Version None)
Quarter: 2005Q4

REPORT INFORMATION
  Report Type: 
  Country: None (occurrence: None)
  Receive Date: 20051107
  Receipt Date: 20051024
  Transmission Date: 20060501
  Serious: Yes (Other)
  Sender: FDA-Public Use
  Company Number: 2005130572

PATIENT
  Age: 46 Year
  Sex: Female

DRUGS (3)
  1. DIFLUCAN [Suspect]
     Indication: VAGINAL CANDIDIASIS
     Dosage: 150 MG (INTERVAL INTERMITTEND), ORAL
     Route: 048
  2. CIPROFLOXACIN [Suspect]
     Indication: ILL-DEFINED DISORDER
  3. ALL OTHER THERAPEUTIC PRODUCTS (ALL OTHER THERAPEUTIC PRODUCTS) [Concomitant]

REACTIONS (4)
  - FLUSHING [None]
  - SUBCUTANEOUS NODULE [None]
  - TYPE III IMMUNE COMPLEX MEDIATED REACTION [None]
  - VASCULITIS [None]
